FAERS Safety Report 13041325 (Version 2)
Quarter: 2025Q4

REPORT INFORMATION
  Report Type: Spontaneous
  Country: GB (occurrence: GB)
  Receive Date: 20161219
  Receipt Date: 20251105
  Transmission Date: 20260117
  Serious: Yes (Life-Threatening, Other)
  Sender: CELLTRION
  Company Number: GB-CELLTRION INC.-2016GB013202

PATIENT

DRUGS (6)
  1. INFLIXIMAB [Suspect]
     Active Substance: INFLIXIMAB
     Indication: Inflammatory bowel disease
     Dosage: UNK
     Dates: start: 201603
  2. AZATHIOPRINE [Concomitant]
     Active Substance: AZATHIOPRINE
  3. QVAR [Concomitant]
     Active Substance: BECLOMETHASONE DIPROPIONATE
     Route: 055
  4. MESALAMINE [Concomitant]
     Active Substance: MESALAMINE
  5. MONTELUKAST [Concomitant]
     Active Substance: MONTELUKAST
  6. NARATRIPTAN [Concomitant]
     Active Substance: NARATRIPTAN HYDROCHLORIDE

REACTIONS (3)
  - Breast cancer female [Recovered/Resolved]
  - Off label use [Unknown]
  - Product use in unapproved indication [Unknown]

NARRATIVE: CASE EVENT DATE: 20160807
